FAERS Safety Report 18380396 (Version 1)
Quarter: 2020Q4

REPORT INFORMATION
  Report Type: Report from Study
  Country: FR (occurrence: FR)
  Receive Date: 20201014
  Receipt Date: 20201014
  Transmission Date: 20210114
  Serious: Yes (Hospitalization)
  Sender: FDA-Public Use
  Company Number: FR-CELLTRION INC.-2020FR028751

PATIENT

DRUGS (3)
  1. PENTASA [Concomitant]
     Active Substance: MESALAMINE
     Indication: INFLAMMATORY BOWEL DISEASE
     Dosage: UNK
     Route: 048
     Dates: start: 1990
  2. INFLIXIMAB PFIZER (UNKNOWN) [Suspect]
     Active Substance: INFLIXIMAB
     Indication: CROHN^S DISEASE
     Dosage: 700 MG, EVERY 8 WEEKS
     Dates: start: 20180411
  3. IMUREL [AZATHIOPRINE] [Concomitant]
     Active Substance: AZATHIOPRINE
     Indication: INFLAMMATORY BOWEL DISEASE
     Dosage: UNK
     Route: 048
     Dates: start: 20180411

REACTIONS (2)
  - Small intestinal obstruction [Recovered/Resolved]
  - Small intestinal stenosis [Recovered/Resolved]

NARRATIVE: CASE EVENT DATE: 20191208
